FAERS Safety Report 8673731 (Version 2)
Quarter: 2014Q2

REPORT INFORMATION
  Report Type: Spontaneous
  Country: AU (occurrence: AU)
  Receive Date: 20120626
  Receipt Date: 20140508
  Transmission Date: 20141212
  Serious: Yes (Hospitalization)
  Sender: FDA-Public Use
  Company Number: AU-BAXTER-2012BAX009168

PATIENT
  Age: 54 Year
  Sex: Male

DRUGS (11)
  1. KIOVIG NORMAL IMMUNOGLOBULIN (HUMAN) 10G/100ML FOR INTRAVENOUS USE INJ [Suspect]
     Indication: IMMUNOSUPPRESSION
     Route: 042
     Dates: start: 20120306, end: 20120306
  2. KIOVIG NORMAL IMMUNOGLOBULIN (HUMAN) 10G/100ML FOR INTRAVENOUS USE INJ [Suspect]
     Dosage: 0.75 G/KG
     Route: 065
  3. ENOXAPARIN [Suspect]
     Indication: PROPHYLAXIS
     Route: 065
  4. BASILIXIMAB [Concomitant]
     Indication: IMMUNOSUPPRESSION
     Route: 065
  5. PREDNISOLONE [Concomitant]
     Indication: IMMUNOSUPPRESSION
     Route: 065
  6. MYCOPHENOLATE MOFETIL [Concomitant]
     Indication: IMMUNOSUPPRESSION
     Route: 065
  7. MYCOPHENOLATE MOFETIL [Concomitant]
     Route: 065
  8. MYCOPHENOLATE MOFETIL [Concomitant]
     Route: 065
  9. TACROLIMUS [Concomitant]
     Indication: IMMUNOSUPPRESSION
     Dosage: TROUGH LEVELS OF 5 TO 8 NG/ML
     Route: 065
  10. TACROLIMUS [Concomitant]
     Dosage: REDUCED TO ACHIEVE LEVELS OF 3 TO 5 NG/ML
     Route: 065
  11. TACROLIMUS [Concomitant]
     Dosage: TO ACHIEVE LEVELS OF 1 TO 2 NG/ML
     Route: 065

REACTIONS (5)
  - Thrombotic microangiopathy [Recovered/Resolved with Sequelae]
  - Renal failure [Recovered/Resolved with Sequelae]
  - Pyrexia [Recovered/Resolved with Sequelae]
  - Chills [Recovered/Resolved with Sequelae]
  - Hyperhidrosis [Recovered/Resolved with Sequelae]
